FAERS Safety Report 6511269-1 (Version None)
Quarter: 2009Q4

REPORT INFORMATION
  Report Type: 
  Country: None (occurrence: None)
  Receive Date: 20091217
  Receipt Date: 20091202
  Transmission Date: 20100525
  Serious: Yes (Other)
  Sender: FDA-Public Use
  Company Number: 002582

PATIENT
  Sex: Male
  Weight: 87.9978 kg

DRUGS (6)
  1. LACOSAMIDE [Suspect]
     Indication: EPILEPSY
     Dosage: 250 MG BID ORAL
     Route: 048
     Dates: start: 20080903
  2. KEPPRA [Concomitant]
  3. CLARITIN [Concomitant]
  4. ALKA SELTZER [Concomitant]
  5. ANTACID TAB [Concomitant]
  6. KLONOPIN [Concomitant]

REACTIONS (1)
  - CHOLELITHIASIS [None]
